FAERS Safety Report 24579380 (Version 2)
Quarter: 2025Q2

REPORT INFORMATION
  Report Type: Spontaneous
  Country: US (occurrence: US)
  Receive Date: 20241105
  Receipt Date: 20250519
  Transmission Date: 20250717
  Serious: No
  Sender: MARIUS PHARMACEUTICALS
  Company Number: US-MARIUS PHARMACEUTICALS, LLC-2024US002587

PATIENT

DRUGS (2)
  1. KYZATREX [Suspect]
     Active Substance: TESTOSTERONE UNDECANOATE
     Indication: Product used for unknown indication
     Dosage: 400 MG, BID
  2. KYZATREX [Suspect]
     Active Substance: TESTOSTERONE UNDECANOATE
     Dosage: 200 MG, DAILY (QD)

REACTIONS (2)
  - Palpitations [Recovering/Resolving]
  - Insomnia [Recovering/Resolving]

NARRATIVE: CASE EVENT DATE: 20240701
